FAERS Safety Report 5813620-4 (Version None)
Quarter: 2008Q3

REPORT INFORMATION
  Report Type: 
  Country: None (occurrence: None)
  Receive Date: 20080716
  Receipt Date: 20080716
  Transmission Date: 20090109
  Serious: Yes (Hospitalization, Other)
  Sender: FDA-Public Use
  Company Number: None

PATIENT
  Age: 83 Year
  Sex: Female

DRUGS (1)
  1. LYRICA [Suspect]

REACTIONS (3)
  - ILL-DEFINED DISORDER [None]
  - SOMNOLENCE [None]
  - UNRESPONSIVE TO STIMULI [None]
